FAERS Safety Report 5704284-9 (Version None)
Quarter: 2008Q2

REPORT INFORMATION
  Report Type: 
  Country: None (occurrence: None)
  Receive Date: 20080414
  Receipt Date: 20080402
  Transmission Date: 20081010
  Serious: Yes (Hospitalization)
  Sender: FDA-Public Use
  Company Number: FR-ASTRAZENECA-2008SE01260

PATIENT
  Age: 28084 Day
  Sex: Female

DRUGS (10)
  1. KENZEN 16 MG [Suspect]
     Indication: HYPERTENSION
     Route: 048
     Dates: end: 20070827
  2. AMOXICILLIN [Suspect]
     Indication: SCARLET FEVER
     Route: 048
     Dates: start: 20070822, end: 20070827
  3. LASILIX [Concomitant]
     Indication: HYPERTENSION
     Route: 048
  4. MEDIATOR [Concomitant]
     Indication: HYPERTRIGLYCERIDAEMIA
     Route: 048
  5. SIMVASTATIN [Concomitant]
     Indication: HYPERCHOLESTEROLAEMIA
     Route: 048
  6. DIOSMIN [Concomitant]
     Indication: VENOUS STASIS
     Route: 048
  7. CETIRIZINE HCL [Concomitant]
     Indication: RASH PRURITIC
     Route: 048
     Dates: start: 20070820
  8. CELESTONE [Concomitant]
     Indication: RASH PRURITIC
     Route: 048
     Dates: start: 20070820
  9. DESONIDE [Concomitant]
     Indication: RASH PRURITIC
     Route: 061
     Dates: start: 20070820
  10. CYTEAL [Concomitant]
     Indication: RASH PRURITIC
     Route: 061

REACTIONS (1)
  - ACUTE GENERALISED EXANTHEMATOUS PUSTULOSIS [None]
